FAERS Safety Report 6994238-7 (Version None)
Quarter: 2010Q3

REPORT INFORMATION
  Report Type: 
  Country: None (occurrence: None)
  Receive Date: 20100917
  Receipt Date: 20100602
  Transmission Date: 20110219
  Serious: Yes (Hospitalization)
  Sender: FDA-Public Use
  Company Number: US-ASTRAZENECA-2009UW11114

PATIENT
  Age: 566 Month
  Sex: Male

DRUGS (9)
  1. SEROQUEL [Suspect]
     Indication: BIPOLAR DISORDER
     Dosage: 500-600MG
     Route: 048
     Dates: start: 20031201
  2. CYCLOBENZAPRINE HCL [Concomitant]
     Indication: MUSCLE RELAXANT THERAPY
     Dosage: TAKE ONE-HALF TABLET BY MOUTH ONCE A DAY
     Route: 048
     Dates: start: 20031201
  3. DIVALPROEX SODIUM [Concomitant]
     Indication: BIPOLAR DISORDER
     Dosage: TAKE TWO TABLETS AT BEDTIME
     Route: 048
     Dates: start: 20031201
  4. HYDROXYZINE PAMOATE [Concomitant]
     Route: 048
     Dates: start: 20031201
  5. LISINOPRIL [Concomitant]
     Route: 048
     Dates: start: 20031201
  6. OXAPROZIN [Concomitant]
     Indication: PAIN
     Route: 048
     Dates: start: 20031201
  7. SIMVASTATIN [Concomitant]
     Indication: BLOOD CHOLESTEROL
     Dosage: TAKE ONE HALF TABLET AT BEDTIME
     Route: 048
     Dates: start: 20031201
  8. SIMVASTATIN [Concomitant]
     Indication: HYPERLIPIDAEMIA
     Dosage: TAKE ONE HALF TABLET AT BEDTIME
     Route: 048
     Dates: start: 20031201
  9. FELODIPINE [Concomitant]
     Indication: HYPERTENSION
     Dates: start: 20050808

REACTIONS (3)
  - DIABETES MELLITUS [None]
  - DIABETIC KETOACIDOSIS [None]
  - WEIGHT DECREASED [None]
